FAERS Safety Report 7214167-3 (Version None)
Quarter: 2011Q1

REPORT INFORMATION
  Report Type: 
  Country: None (occurrence: None)
  Receive Date: 20110107
  Receipt Date: 20101228
  Transmission Date: 20110831
  Serious: Yes (Hospitalization)
  Sender: FDA-Public Use
  Company Number: US-ELI_LILLY_AND_COMPANY-US201101000786

PATIENT
  Sex: Female
  Weight: 73.016 kg

DRUGS (18)
  1. COMBIVENT [Concomitant]
     Indication: ANTASTHMATIC DRUG LEVEL
     Dosage: 2 D/F, 4/D
     Route: 050
  2. GLUCOPHAGE [Concomitant]
     Indication: DIABETES MELLITUS
     Dosage: 500 MG, 2/D
     Route: 048
  3. ASPIRIN [Concomitant]
     Dosage: 325 MG, DAILY (1/D)
     Route: 048
     Dates: start: 20100618
  4. LOPRESSOR [Concomitant]
     Indication: HYPERTENSION
     Dosage: 50 MG, 2/D
     Route: 048
  5. PRASUGREL HYDROCHLORIDE [Suspect]
     Dosage: 10 MG, DAILY (1/D)
     Dates: start: 20100618
  6. SULFASALAZINE [Concomitant]
     Indication: CROHN'S DISEASE
     Dosage: 500 MG, 4/D
     Route: 048
  7. SALMETEROL [Concomitant]
     Indication: STEROID THERAPY
     Dosage: 1 D/F, 2/D
     Route: 050
  8. LORTAB [Concomitant]
     Indication: PRODUCT USED FOR UNKNOWN INDICATION
     Dosage: 7.5 MG, AS NEEDED
     Route: 048
  9. LEXAPRO [Concomitant]
     Indication: DEPRESSION
     Dosage: 162 MG, DAILY (1/D)
     Route: 048
  10. PRILOSEC [Concomitant]
     Indication: GASTROOESOPHAGEAL REFLUX DISEASE
     Dosage: 20 MG, DAILY (1/D)
     Route: 048
  11. IMDUR [Concomitant]
     Indication: NITRATE COMPOUND THERAPY
     Dosage: 2/D UNK
     Route: 048
  12. NORVASC [Concomitant]
     Indication: HYPERTENSION
     Dosage: 5 MG, DAILY (1/D)
  13. PRASUGREL HYDROCHLORIDE [Suspect]
     Indication: ACUTE CORONARY SYNDROME
     Dosage: 60 MG, ONCE
     Dates: start: 20100617, end: 20100617
  14. ASPIRIN [Concomitant]
     Indication: CORONARY ARTERY DISEASE
     Dosage: 162 MG, DAILY (1/D)
     Route: 048
     Dates: end: 20100617
  15. VENTOLIN                                /SCH/ [Concomitant]
     Indication: ANTASTHMATIC DRUG LEVEL
     Dosage: 2 D/F, UNK
     Route: 050
  16. FENOFIBRATE [Concomitant]
     Indication: HYPERLIPIDAEMIA
     Dosage: 145 MG, DAILY (1/D)
     Route: 048
  17. LISINOPRIL [Concomitant]
     Indication: HYPERTENSION
     Dosage: 10 MG, DAILY (1/D)
     Route: 048
  18. HYDROCHLOROTHIAZIDE [Concomitant]
     Dosage: 25 MG, DAILY (1/D)

REACTIONS (1)
  - PNEUMONIA [None]
